FAERS Safety Report 11111761 (Version 1)
Quarter: 2015Q2

REPORT INFORMATION
  Report Type: Report from Study
  Country: US (occurrence: US)
  Receive Date: 20150514
  Receipt Date: 20150514
  Transmission Date: 20150821
  Serious: No
  Sender: FDA-Public Use
  Company Number: US-AMGEN-USASL2015045026

PATIENT
  Age: 38 Year
  Sex: Female

DRUGS (1)
  1. ENBREL [Suspect]
     Active Substance: ETANERCEPT
     Indication: RHEUMATOID ARTHRITIS
     Dosage: 50 MG, QWK
     Route: 065
     Dates: start: 20150407, end: 201504

REACTIONS (10)
  - Adverse drug reaction [Recovered/Resolved]
  - Oral fungal infection [Recovered/Resolved]
  - Decreased appetite [Recovered/Resolved]
  - Trigeminal neuralgia [Recovered/Resolved]
  - Tympanic membrane perforation [Recovered/Resolved]
  - Weight decreased [Recovered/Resolved]
  - Ear pain [Recovered/Resolved]
  - Otorrhoea [Recovered/Resolved]
  - Glossodynia [Recovered/Resolved]
  - Sinus headache [Recovered/Resolved]

NARRATIVE: CASE EVENT DATE: 20150407
